FAERS Safety Report 9685389 (Version 2)
Quarter: 2013Q4

REPORT INFORMATION
  Report Type: Report from Study
  Country: AR (occurrence: AR)
  Receive Date: 20131113
  Receipt Date: 20131115
  Transmission Date: 20140711
  Serious: Yes (Other)
  Sender: FDA-Public Use
  Company Number: PHHY2013AR129244

PATIENT
  Sex: Female

DRUGS (1)
  1. DIOVAN [Suspect]
     Indication: HYPERTENSION
     Dosage: 1 DF, (80 MG) PER DAY
     Route: 048

REACTIONS (4)
  - Fall [Recovering/Resolving]
  - Head injury [Recovering/Resolving]
  - Gait disturbance [Not Recovered/Not Resolved]
  - Blood sodium decreased [Recovering/Resolving]
